FAERS Safety Report 12017595 (Version 1)
Quarter: 2016Q1

REPORT INFORMATION
  Report Type: Report from Study
  Country: US (occurrence: US)
  Receive Date: 20160205
  Receipt Date: 20160205
  Transmission Date: 20160526
  Serious: No
  Sender: FDA-Public Use
  Company Number: US-ABBVIE-15K-163-1453133-00

PATIENT
  Sex: Male

DRUGS (2)
  1. MIRALAX [Suspect]
     Active Substance: POLYETHYLENE GLYCOL 3350
     Indication: PRODUCT USED FOR UNKNOWN INDICATION
     Route: 065
  2. HUMIRA [Suspect]
     Active Substance: ADALIMUMAB
     Indication: PSORIATIC ARTHROPATHY
     Route: 065
     Dates: start: 201507

REACTIONS (11)
  - Sinusitis [Recovered/Resolved]
  - Intestinal obstruction [Unknown]
  - Achlorhydria [Unknown]
  - Pain in extremity [Unknown]
  - Gastritis [Not Recovered/Not Resolved]
  - Corneal disorder [Unknown]
  - Dry eye [Unknown]
  - Diarrhoea [Unknown]
  - Constipation [Unknown]
  - Burning sensation [Not Recovered/Not Resolved]
  - Pain in extremity [Not Recovered/Not Resolved]

NARRATIVE: CASE EVENT DATE: 2015
